FAERS Safety Report 13543063 (Version 1)
Quarter: 2017Q2

REPORT INFORMATION
  Report Type: Spontaneous
  Country: US (occurrence: US)
  Receive Date: 20170512
  Receipt Date: 20170512
  Transmission Date: 20170830
  Serious: Yes (Hospitalization)
  Sender: FDA-Public Use
  Company Number: None

PATIENT
  Age: 70 Year
  Sex: Male
  Weight: 102.51 kg

DRUGS (2)
  1. APIXABAN [Suspect]
     Active Substance: APIXABAN
     Indication: ATRIAL FIBRILLATION
     Route: 048
     Dates: start: 20170507
  2. ENOXAPARIN [Suspect]
     Active Substance: ENOXAPARIN
     Indication: DYSPNOEA
     Route: 058
     Dates: start: 20170406, end: 20170406

REACTIONS (7)
  - Dizziness [None]
  - Diverticulum [None]
  - Haemorrhoids [None]
  - Haematochezia [None]
  - Disorientation [None]
  - Large intestine polyp [None]
  - Haemoglobin decreased [None]

NARRATIVE: CASE EVENT DATE: 20170410
